FAERS Safety Report 7294081-8 (Version None)
Quarter: 2011Q1

REPORT INFORMATION
  Report Type: 
  Country: None (occurrence: None)
  Receive Date: 20110215
  Receipt Date: 20110120
  Transmission Date: 20110831
  Serious: No
  Sender: FDA-Public Use
  Company Number: US-B.I. PHARMACEUTICALS,INC./RIDGEFIELD-2010-BP-15186BP

PATIENT
  Sex: Female

DRUGS (13)
  1. PRADAXA [Suspect]
     Dosage: 300 MG
     Route: 048
     Dates: start: 20101201
  2. TRAMADOL [Concomitant]
  3. METOPROLOL [Concomitant]
     Indication: HYPERTENSION
     Dosage: 50 MG
     Route: 048
     Dates: start: 19990101
  4. PRADAXA [Suspect]
     Indication: ATRIAL FIBRILLATION
     Dosage: 300 MG
     Route: 048
     Dates: start: 20101207, end: 20101209
  5. QUINAPRIL [Concomitant]
     Indication: HYPERTENSION
     Route: 048
  6. PRADAXA [Suspect]
     Dosage: 150 MG
     Route: 048
     Dates: start: 20101211
  7. LYRICA [Concomitant]
     Indication: FIBROMYALGIA
     Route: 048
     Dates: start: 19950101
  8. MULTAQ [Concomitant]
  9. TRIAMTERENE [Concomitant]
  10. TRAMADOL [Concomitant]
     Indication: FIBROMYALGIA
     Route: 048
     Dates: start: 19950101
  11. LUNESTA [Concomitant]
  12. NEXIUM [Concomitant]
     Indication: GASTROOESOPHAGEAL REFLUX DISEASE
     Route: 048
  13. QUINAPRIL [Concomitant]

REACTIONS (10)
  - HEART RATE DECREASED [None]
  - ABDOMINAL DISTENSION [None]
  - THROAT TIGHTNESS [None]
  - RASH [None]
  - DECREASED APPETITE [None]
  - PRURITUS [None]
  - HEART RATE INCREASED [None]
  - FATIGUE [None]
  - ABDOMINAL DISCOMFORT [None]
  - HYPOTENSION [None]
